FAERS Safety Report 11661483 (Version 3)
Quarter: 2015Q4

REPORT INFORMATION
  Report Type: Spontaneous
  Country: US (occurrence: US)
  Receive Date: 20151026
  Receipt Date: 20151027
  Transmission Date: 20160304
  Serious: No
  Sender: FDA-Public Use
  Company Number: US-BAUSCH-BL-2015-017968

PATIENT
  Sex: Female

DRUGS (6)
  1. PREDNISONE. [Concomitant]
     Active Substance: PREDNISONE
     Indication: PRODUCT USED FOR UNKNOWN INDICATION
     Route: 061
  2. PROLENSA [Suspect]
     Active Substance: BROMFENAC SODIUM
     Route: 061
     Dates: start: 20150716, end: 20150716
  3. PROLENSA [Suspect]
     Active Substance: BROMFENAC SODIUM
     Route: 061
     Dates: start: 20150717, end: 20150720
  4. PROLENSA [Suspect]
     Active Substance: BROMFENAC SODIUM
     Indication: SURGERY
     Route: 061
     Dates: start: 20150714, end: 20150715
  5. PROLENSA [Suspect]
     Active Substance: BROMFENAC SODIUM
     Route: 061
     Dates: start: 20150721, end: 20150721
  6. PROLENSA [Suspect]
     Active Substance: BROMFENAC SODIUM
     Route: 061
     Dates: start: 20150722

REACTIONS (2)
  - No adverse event [Unknown]
  - Drug administration error [Recovered/Resolved]

NARRATIVE: CASE EVENT DATE: 20150714
